FAERS Safety Report 10184958 (Version 1)
Quarter: 2014Q2

REPORT INFORMATION
  Report Type: Spontaneous
  Country: DE (occurrence: DE)
  Receive Date: 20140521
  Receipt Date: 20140521
  Transmission Date: 20141212
  Serious: Yes (Other)
  Sender: FDA-Public Use
  Company Number: DE-CELGENEUS-062-50794-13102547

PATIENT
  Age: 57 Year
  Sex: Male

DRUGS (8)
  1. VIDAZA [Suspect]
     Indication: ACUTE MYELOID LEUKAEMIA
     Route: 050
     Dates: start: 20070921, end: 20071218
  2. VIDAZA [Suspect]
     Route: 050
     Dates: start: 20080213
  3. VIDAZA [Suspect]
     Route: 050
     Dates: start: 200805
  4. VIDAZA [Suspect]
     Route: 050
     Dates: start: 200808
  5. COTRIM FORTE [Concomitant]
     Indication: PRODUCT USED FOR UNKNOWN INDICATION
     Route: 065
  6. OMNIC [Concomitant]
     Indication: PRODUCT USED FOR UNKNOWN INDICATION
     Route: 065
  7. OMNIC [Concomitant]
     Route: 065
  8. ACICLOVIR [Concomitant]
     Indication: PRODUCT USED FOR UNKNOWN INDICATION
     Dosage: 600 MILLIGRAM
     Route: 065

REACTIONS (8)
  - Graft versus host disease [Unknown]
  - Lumbar vertebral fracture [Unknown]
  - Graft versus host disease [Unknown]
  - Chloroma [Unknown]
  - Leukaemia recurrent [Unknown]
  - Febrile neutropenia [Unknown]
  - Febrile neutropenia [Unknown]
  - Rotavirus infection [Unknown]
